FAERS Safety Report 8304660 (Version 3)
Quarter: 2017Q1

REPORT INFORMATION
  Report Type: Spontaneous
  Country: CN (occurrence: CN)
  Receive Date: 20111221
  Receipt Date: 20170329
  Transmission Date: 20170429
  Serious: Yes (Death)
  Sender: FDA-Public Use
  Company Number: CN-JNJFOC-20111208437

PATIENT
  Sex: Female
  Weight: 60 kg

DRUGS (3)
  1. RISPERDAL [Suspect]
     Active Substance: RISPERIDONE
     Indication: SCHIZOPHRENIA
     Dosage: NIGHT AND MORNING
     Route: 048
     Dates: start: 2008, end: 201001
  2. RISPERDAL [Suspect]
     Active Substance: RISPERIDONE
     Indication: SCHIZOPHRENIA
     Dosage: 2 TIMES A DAY, MORNING AND EVENING EACH 2.5ML
     Route: 048
     Dates: start: 201010
  3. RISPERDAL [Suspect]
     Active Substance: RISPERIDONE
     Indication: SCHIZOPHRENIA
     Dosage: TWICE A DAY
     Route: 065
     Dates: start: 201001, end: 201010

REACTIONS (4)
  - Completed suicide [Fatal]
  - Hallucination [Unknown]
  - Drug ineffective [Unknown]
  - Product counterfeit [Fatal]
